FAERS Safety Report 20223135 (Version 4)
Quarter: 2022Q3

REPORT INFORMATION
  Report Type: Spontaneous
  Country: US (occurrence: US)
  Receive Date: 20211223
  Receipt Date: 20220826
  Transmission Date: 20221026
  Serious: No
  Sender: FDA-Public Use
  Company Number: US-PFIZER INC-202101281073

PATIENT
  Age: 84 Year
  Sex: Female
  Weight: 75.3 kg

DRUGS (1)
  1. IBRANCE [Suspect]
     Active Substance: PALBOCICLIB
     Dosage: 125 MG

REACTIONS (3)
  - Inappropriate schedule of product administration [Unknown]
  - Product dose omission issue [Unknown]
  - Hypoacusis [Unknown]

NARRATIVE: CASE EVENT DATE: 20220714
